FAERS Safety Report 20720043 (Version 4)
Quarter: 2022Q3

REPORT INFORMATION
  Report Type: Report from Study
  Country: US (occurrence: US)
  Receive Date: 20220418
  Receipt Date: 20220708
  Transmission Date: 20221026
  Serious: No
  Sender: FDA-Public Use
  Company Number: US-NOVARTISTESTPH-NVSC2022US085936

PATIENT
  Sex: Female

DRUGS (2)
  1. COSENTYX [Suspect]
     Active Substance: SECUKINUMAB
     Indication: Psoriasis
     Dosage: 300 MG (PT HAD BEEN OFF COSENTYX FOR ABOUT 8 MONTHS)
     Route: 058
  2. COSENTYX [Suspect]
     Active Substance: SECUKINUMAB
     Dosage: 300 MG (HAD NOT BEEN ON COSENTYX FOR ABOUT 9 MONTHS)
     Route: 058

REACTIONS (3)
  - Anxiety [Recovered/Resolved]
  - Helicobacter gastritis [Recovering/Resolving]
  - Psoriasis [Unknown]
